FAERS Safety Report 14732565 (Version 3)
Quarter: 2018Q2

REPORT INFORMATION
  Report Type: Spontaneous
  Country: GB (occurrence: GB)
  Receive Date: 20180409
  Receipt Date: 20180509
  Transmission Date: 20180711
  Serious: Yes (Hospitalization, Other)
  Sender: FDA-Public Use
  Company Number: GB-MYLANLABS-2018M1021137

PATIENT
  Age: 19 Year
  Sex: Female
  Weight: 79 kg

DRUGS (2)
  1. SERTRALINE [Concomitant]
     Active Substance: SERTRALINE HYDROCHLORIDE
     Indication: PRODUCT USED FOR UNKNOWN INDICATION
     Dosage: UNK
  2. CLOZARIL [Suspect]
     Active Substance: CLOZAPINE
     Indication: SCHIZOPHRENIA
     Dosage: UNK
     Route: 048
     Dates: start: 20160603, end: 201803

REACTIONS (7)
  - Platelet count decreased [Recovered/Resolved]
  - Blood potassium decreased [Recovered/Resolved]
  - Neutrophil count decreased [Recovered/Resolved]
  - Mental disorder [Recovering/Resolving]
  - White blood cell count decreased [Recovered/Resolved]
  - Diet refusal [Recovered/Resolved]
  - Eating disorder [Recovered/Resolved]

NARRATIVE: CASE EVENT DATE: 201803
